FAERS Safety Report 4721853-3 (Version None)
Quarter: 2005Q3

REPORT INFORMATION
  Report Type: 
  Country: None (occurrence: None)
  Receive Date: 20050721
  Receipt Date: 20050510
  Transmission Date: 20060218
  Serious: No
  Sender: FDA-Public Use
  Company Number: US-BRISTOL-MYERS SQUIBB COMPANY-12961785

PATIENT
  Age: 78 Year
  Sex: Female
  Weight: 61 kg

DRUGS (10)
  1. COUMADIN [Suspect]
     Indication: HEART VALVE REPLACEMENT
     Dates: start: 19990101
  2. CALCIUM GLUCONATE [Concomitant]
  3. DIGITEK [Concomitant]
  4. ECOTRIN [Concomitant]
  5. FUROSEMIDE [Concomitant]
  6. IRON [Concomitant]
  7. MONOPRIL [Concomitant]
  8. MULTI-VITAMIN [Concomitant]
  9. SOTALOL HCL [Concomitant]
  10. ZOCOR [Concomitant]

REACTIONS (1)
  - INTERNATIONAL NORMALISED RATIO FLUCTUATION [None]
